FAERS Safety Report 6031911-1 (Version None)
Quarter: 2009Q1

REPORT INFORMATION
  Report Type: 
  Country: None (occurrence: None)
  Receive Date: 20090108
  Receipt Date: 20081217
  Transmission Date: 20090719
  Serious: No
  Sender: FDA-Public Use
  Company Number: GR-ROCHE-597990

PATIENT
  Age: 60 Year
  Sex: Female

DRUGS (2)
  1. PEG-INTERFERON ALFA 2A (RO 25-8310) [Suspect]
     Route: 065
     Dates: end: 20081001
  2. RIBAVIRIN [Suspect]
     Route: 065
     Dates: end: 20081001

REACTIONS (1)
  - ERYTHEMA NODOSUM [None]
